FAERS Safety Report 4369041-7 (Version None)
Quarter: 2004Q2

REPORT INFORMATION
  Report Type: 
  Country: None (occurrence: None)
  Receive Date: 20040525
  Receipt Date: 20040209
  Transmission Date: 20050107
  Serious: Yes (Other)
  Sender: FDA-Public Use
  Company Number: DE-JNJFOC-20040104427

PATIENT
  Age: 11 Year
  Sex: Male
  Weight: 65 kg

DRUGS (1)
  1. CONCERTA [Suspect]
     Indication: ATTENTION DEFICIT/HYPERACTIVITY DISORDER
     Dosage: 36 MG, IN 1 DAY, ORAL
     Route: 048
     Dates: start: 20030601, end: 20031001

REACTIONS (4)
  - ANGINA PECTORIS [None]
  - DYSPNOEA EXERTIONAL [None]
  - ELECTROCARDIOGRAM ST SEGMENT ELEVATION [None]
  - SINUS TACHYCARDIA [None]
